FAERS Safety Report 11044816 (Version 1)
Quarter: 2015Q2

REPORT INFORMATION
  Report Type: Spontaneous
  Country: US (occurrence: US)
  Receive Date: 20150417
  Receipt Date: 20150417
  Transmission Date: 20150821
  Serious: Yes (Other)
  Sender: FDA-Public Use
  Company Number: US-BAYER-2015-129860

PATIENT
  Sex: Female

DRUGS (1)
  1. GIANVI [Suspect]
     Active Substance: DROSPIRENONE\ETHINYL ESTRADIOL

REACTIONS (4)
  - Pregnancy on oral contraceptive [None]
  - Inappropriate schedule of drug administration [None]
  - Abnormal withdrawal bleeding [None]
  - Drug dose omission [None]
